FAERS Safety Report 19123745 (Version 8)
Quarter: 2021Q2

REPORT INFORMATION
  Report Type: Report from Study
  Country: FR (occurrence: FR)
  Receive Date: 20210412
  Receipt Date: 20210617
  Transmission Date: 20210717
  Serious: Yes (Life-Threatening, Hospitalization)
  Sender: FDA-Public Use
  Company Number: FR-ROCHE-2791732

PATIENT
  Age: 75 Year
  Sex: Male
  Weight: 69 kg

DRUGS (14)
  1. AMIKLIN [Concomitant]
     Active Substance: AMIKACIN SULFATE
     Dates: start: 20210317, end: 202103
  2. CUBICIN [Concomitant]
     Active Substance: DAPTOMYCIN
     Dates: start: 20210317, end: 20210322
  3. LINEZOLIDE [Concomitant]
     Active Substance: LINEZOLID
     Dates: start: 20210323, end: 202103
  4. TAZOCILLINE [Concomitant]
     Active Substance: PIPERACILLIN SODIUM\TAZOBACTAM SODIUM
     Dates: start: 202103, end: 20210317
  5. ATEZOLIZUMAB. [Suspect]
     Active Substance: ATEZOLIZUMAB
     Indication: TRANSITIONAL CELL CARCINOMA
     Dosage: DATE OF MOST RECENT DOSE OF STUDY DRUG PRIOR TO ADVERSE EVENT 03?MAR?2021 1200 MG
     Route: 041
     Dates: start: 20210303
  6. MEROPENEM. [Concomitant]
     Active Substance: MEROPENEM
     Dates: start: 20210317, end: 202103
  7. MACROGOL [Concomitant]
     Active Substance: POLYETHYLENE GLYCOLS
  8. CIFLOX (FRANCE) [Concomitant]
     Active Substance: CIPROFLOXACIN
     Dates: start: 202103, end: 202103
  9. NEUPOGEN [Concomitant]
     Active Substance: FILGRASTIM
     Dates: start: 202103, end: 202103
  10. ATARAX [Concomitant]
     Active Substance: HYDROXYZINE HYDROCHLORIDE
  11. SACITUZUMAB GOVITECAN. [Suspect]
     Active Substance: SACITUZUMAB GOVITECAN
     Indication: TRANSITIONAL CELL CARCINOMA
     Dosage: DATE OF MOST RECENT DOSE OF STUDY DRUG PRIOR TO ADVERSE EVENT 10?MAR?2021 720 MG?AS PER PROTOCOL (DA
     Route: 042
     Dates: start: 20210303
  12. LENOGRASTIM [Concomitant]
     Active Substance: LENOGRASTIM
     Dates: start: 20210317, end: 20210321
  13. DERMOVAL (FRANCE) [Concomitant]
  14. NORADRENALINE [Concomitant]
     Active Substance: NOREPINEPHRINE
     Dates: start: 20210317, end: 20210319

REACTIONS (2)
  - Sepsis [Recovered/Resolved]
  - Febrile neutropenia [Recovered/Resolved]

NARRATIVE: CASE EVENT DATE: 20210313
